FAERS Safety Report 16771460 (Version 1)
Quarter: 2019Q3

REPORT INFORMATION
  Report Type: Spontaneous
  Country: US (occurrence: US)
  Receive Date: 20190904
  Receipt Date: 20190904
  Transmission Date: 20191005
  Serious: No
  Sender: FDA-Public Use
  Company Number: US-PFIZER INC-2019350759

PATIENT
  Age: 51 Year
  Sex: Female
  Weight: 57.14 kg

DRUGS (7)
  1. TRAZODONE [Concomitant]
     Active Substance: TRAZODONE HYDROCHLORIDE
     Dosage: 100 MG, UNK
  2. CHANTIX [Suspect]
     Active Substance: VARENICLINE TARTRATE
     Indication: DEPRESSION
     Dosage: 1 MG, 2X/DAY
     Dates: start: 2018
  3. CHANTIX [Suspect]
     Active Substance: VARENICLINE TARTRATE
     Indication: ANXIETY
  4. CHANTIX [Suspect]
     Active Substance: VARENICLINE TARTRATE
     Indication: STRESS
  5. CHANTIX [Suspect]
     Active Substance: VARENICLINE TARTRATE
     Indication: BIPOLAR DISORDER
  6. CHANTIX [Suspect]
     Active Substance: VARENICLINE TARTRATE
     Indication: SMOKING CESSATION THERAPY
  7. TRAZODONE [Concomitant]
     Active Substance: TRAZODONE HYDROCHLORIDE
     Dosage: 50 MG, UNK

REACTIONS (4)
  - Off label use [Unknown]
  - Drug effective for unapproved indication [Unknown]
  - Pain [Unknown]
  - Product use in unapproved indication [Unknown]

NARRATIVE: CASE EVENT DATE: 2018
